FAERS Safety Report 22362003 (Version 1)
Quarter: 2023Q2

REPORT INFORMATION
  Report Type: Spontaneous
  Country: US (occurrence: None)
  Receive Date: 20230524
  Receipt Date: 20230524
  Transmission Date: 20230722
  Serious: Yes (Hospitalization)
  Sender: FDA-Public Use
  Company Number: None

PATIENT
  Sex: Female

DRUGS (22)
  1. IBRANCE [Suspect]
     Active Substance: PALBOCICLIB
     Indication: Breast cancer female
     Dosage: OTHER FREQUENCY : 21 D ON 7 D OFF;?
  2. LORAZEPAM [Concomitant]
     Active Substance: LORAZEPAM
  3. STIMULANT LAXATIVE NOS [Concomitant]
     Active Substance: BISACODYL OR SENNOSIDES
  4. SUMATRIPTAN [Concomitant]
     Active Substance: SUMATRIPTAN
  5. CHANTIX [Concomitant]
     Active Substance: VARENICLINE TARTRATE
  6. ZOFRAN [Concomitant]
     Active Substance: ONDANSETRON HYDROCHLORIDE
  7. MORPHINE SULFATE [Concomitant]
     Active Substance: MORPHINE SULFATE
  8. ALBUTEROL SULFATE [Concomitant]
     Active Substance: ALBUTEROL SULFATE
  9. ANASTROZOLE [Concomitant]
     Active Substance: ANASTROZOLE
  10. ATORVASTATIN [Concomitant]
     Active Substance: ATORVASTATIN
  11. BACLOFEN [Concomitant]
     Active Substance: BACLOFEN
  12. ERGOCALCIDEROL [Concomitant]
  13. MS CONTIN [Concomitant]
     Active Substance: MORPHINE SULFATE
  14. OMEPRAZOLE [Concomitant]
     Active Substance: OMEPRAZOLE
  15. OXYCODONE [Concomitant]
     Active Substance: OXYCODONE
  16. PROCHLORPERAZINE [Concomitant]
     Active Substance: PROCHLORPERAZINE
  17. RIBOFLAVIN [Concomitant]
     Active Substance: RIBOFLAVIN
  18. SPIRIVA [Concomitant]
     Active Substance: TIOTROPIUM BROMIDE MONOHYDRATE
  19. TOPAMAX [Concomitant]
     Active Substance: TOPIRAMATE
  20. TRAZODONE [Concomitant]
     Active Substance: TRAZODONE HYDROCHLORIDE
  21. DICLOFENAC SODIUM [Concomitant]
     Active Substance: DICLOFENAC SODIUM
  22. LISINOPRIL [Concomitant]
     Active Substance: LISINOPRIL

REACTIONS (2)
  - Hospitalisation [None]
  - Therapy interrupted [None]
